FAERS Safety Report 4325552-1 (Version None)
Quarter: 2004Q1

REPORT INFORMATION
  Report Type: 
  Country: None (occurrence: None)
  Receive Date: 20040324
  Receipt Date: 20040310
  Transmission Date: 20041129
  Serious: Yes (Death)
  Sender: FDA-Public Use
  Company Number: USA-2004-0013694

PATIENT
  Age: 40 Year
  Sex: Female

DRUGS (5)
  1. OXYCONTIN [Suspect]
     Indication: PAIN
     Dosage: 40 MG, Q12H, ORAL
     Route: 048
     Dates: start: 20020101, end: 20040201
  2. PROCRIT (ERYTHROPOIETIN) [Concomitant]
  3. BACLOFEN [Concomitant]
  4. VALIUM [Concomitant]
  5. AMBIEN [Concomitant]

REACTIONS (3)
  - CONDITION AGGRAVATED [None]
  - DYSPNOEA [None]
  - MULTIPLE SCLEROSIS [None]
